FAERS Safety Report 14803592 (Version 1)
Quarter: 2018Q2

REPORT INFORMATION
  Report Type: Spontaneous
  Country: GB (occurrence: GB)
  Receive Date: 20180425
  Receipt Date: 20180425
  Transmission Date: 20180711
  Serious: Yes (Other)
  Sender: FDA-Public Use
  Company Number: GB-ACCORD-066089

PATIENT
  Age: 76 Year
  Sex: Female
  Weight: 98 kg

DRUGS (5)
  1. RAMIPRIL. [Suspect]
     Active Substance: RAMIPRIL
     Indication: PRODUCT USED FOR UNKNOWN INDICATION
     Dates: start: 20171121
  2. ATORVASTATIN [Concomitant]
     Active Substance: ATORVASTATIN
     Indication: ILL-DEFINED DISORDER
     Dosage: TAKE ONE DAILY
     Dates: start: 20170411
  3. AMLODIPINE [Concomitant]
     Active Substance: AMLODIPINE BESYLATE
     Indication: ILL-DEFINED DISORDER
     Dosage: 1 TABLET ONCE A DAY
     Dates: start: 20170724, end: 20171023
  4. IRBESARTAN. [Concomitant]
     Active Substance: IRBESARTAN
     Indication: ILL-DEFINED DISORDER
     Dosage: TAKE ONE ONCE DAILY
     Dates: start: 20171121
  5. ACETYLSALICYLIC ACID [Concomitant]
     Active Substance: ASPIRIN
     Indication: ILL-DEFINED DISORDER
     Dosage: 1 TABLET ONCE A DAY
     Dates: start: 20170724

REACTIONS (2)
  - Cough [Unknown]
  - Sinusitis [Recovered/Resolved]

NARRATIVE: CASE EVENT DATE: 20171121
